FAERS Safety Report 18391622 (Version 1)
Quarter: 2020Q4

REPORT INFORMATION
  Report Type: Spontaneous
  Country: US (occurrence: US)
  Receive Date: 20201015
  Receipt Date: 20201015
  Transmission Date: 20210114
  Serious: Yes (Death)
  Sender: FDA-Public Use
  Company Number: None

PATIENT
  Age: 22 Year
  Sex: Female
  Weight: 108 kg

DRUGS (4)
  1. BIRTH CONTROL [Concomitant]
     Active Substance: UNSPECIFIED INGREDIENT
  2. CALCIUM [Concomitant]
     Active Substance: CALCIUM
  3. CETERIZINE [Concomitant]
     Active Substance: CETIRIZINE HYDROCHLORIDE
  4. PHENOBARBITAL 32.4 MG [Suspect]
     Active Substance: PHENOBARBITAL
     Indication: EPILEPSY
     Dosage: ?          QUANTITY:5 TABLET(S);?
     Route: 048

REACTIONS (2)
  - Seizure [None]
  - Death [None]

NARRATIVE: CASE EVENT DATE: 20190828
